FAERS Safety Report 18518108 (Version 1)
Quarter: 2020Q4

REPORT INFORMATION
  Report Type: Spontaneous
  Country: US (occurrence: US)
  Receive Date: 20201118
  Receipt Date: 20201118
  Transmission Date: 20210114
  Serious: Yes (Other)
  Sender: FDA-Public Use
  Company Number: US-BAYER-2020-248934

PATIENT
  Sex: Female

DRUGS (1)
  1. KYLEENA [Suspect]
     Active Substance: LEVONORGESTREL
     Indication: CONTRACEPTION
     Dosage: 17.5  ?G PER DAY CONTINUOUSLY
     Route: 015

REACTIONS (6)
  - Back pain [None]
  - Cold sweat [None]
  - Genital haemorrhage [None]
  - Pelvic pain [None]
  - Nausea [None]
  - Hot flush [None]
